FAERS Safety Report 18900658 (Version 1)
Quarter: 2021Q1

REPORT INFORMATION
  Report Type: Report from Study
  Country: JP (occurrence: JP)
  Receive Date: 20210217
  Receipt Date: 20210217
  Transmission Date: 20210420
  Serious: Yes (Other)
  Sender: FDA-Public Use
  Company Number: JP-BION-009443

PATIENT
  Age: 44 Year
  Sex: Male
  Weight: 34.5 kg

DRUGS (1)
  1. VALPROIC ACID. [Suspect]
     Active Substance: VALPROIC ACID
     Indication: GENERALISED TONIC-CLONIC SEIZURE

REACTIONS (5)
  - Neurotransmitter level altered [Recovering/Resolving]
  - Product use in unapproved indication [Not Recovered/Not Resolved]
  - Seizure [Recovering/Resolving]
  - Drug level increased [Recovering/Resolving]
  - Condition aggravated [Recovering/Resolving]
